FAERS Safety Report 20506135 (Version 1)
Quarter: 2022Q1

REPORT INFORMATION
  Report Type: Spontaneous
  Country: FR (occurrence: FR)
  Receive Date: 20220223
  Receipt Date: 20220223
  Transmission Date: 20220423
  Serious: Yes (Hospitalization)
  Sender: FDA-Public Use
  Company Number: None

PATIENT
  Age: 75 Year
  Sex: Male
  Weight: 66 kg

DRUGS (3)
  1. FLUOROURACIL [Suspect]
     Active Substance: FLUOROURACIL
     Indication: Adenocarcinoma pancreas
     Dosage: 1850 MG/M2 EVERY 15 DAYS, STRENGTH  50 MG/ML
     Route: 042
     Dates: start: 20211221
  2. OXALIPLATIN [Suspect]
     Active Substance: OXALIPLATIN
     Indication: Adenocarcinoma pancreas
     Dosage: STRENGTH  5 MG/ML, 70 MG/M2 EVERY 15 DAYS.
     Route: 042
     Dates: start: 20211221
  3. IRINOTECAN [Suspect]
     Active Substance: IRINOTECAN
     Indication: Adenocarcinoma pancreas
     Dosage: 125 MG/M2 TOUS LES 15 JOURS. STRENGTH  20 MG/ML
     Route: 042
     Dates: start: 20211221

REACTIONS (4)
  - Vomiting [Recovered/Resolved]
  - Dysphagia [Recovered/Resolved]
  - Diarrhoea [Recovered/Resolved]
  - Off label use [Unknown]

NARRATIVE: CASE EVENT DATE: 20211227
